FAERS Safety Report 5264450-6 (Version None)
Quarter: 2007Q1

REPORT INFORMATION
  Report Type: 
  Country: None (occurrence: None)
  Receive Date: 20070309
  Receipt Date: 20070302
  Transmission Date: 20070707
  Serious: Yes (Other)
  Sender: FDA-Public Use
  Company Number: 237190

PATIENT
  Age: 65 Year
  Sex: Male

DRUGS (7)
  1. XOLAIR [Suspect]
     Indication: CHRONIC OBSTRUCTIVE PULMONARY DISEASE
     Dosage: 375 MG, Q2W, SUBCUTANEOUS
     Route: 058
  2. ADVAIR DISKUS 100/50 [Concomitant]
  3. SPIRIVA [Concomitant]
  4. NASONEX [Concomitant]
  5. ASTELIN [Concomitant]
  6. ATROVENT [Concomitant]
  7. ALBUTEROL (ALBUTEROL/ALBUTEROL SULFATE) [Concomitant]

REACTIONS (6)
  - CARDIAC DISORDER [None]
  - CHRONIC OBSTRUCTIVE PULMONARY DISEASE [None]
  - DISEASE PROGRESSION [None]
  - NO THERAPEUTIC RESPONSE [None]
  - PHARYNGEAL OEDEMA [None]
  - SKIN TEST POSITIVE [None]
